FAERS Safety Report 9264841 (Version 1)
Quarter: 2013Q2

REPORT INFORMATION
  Report Type: Spontaneous
  Country: US (occurrence: None)
  Receive Date: 20130430
  Receipt Date: 20130430
  Transmission Date: 20140414
  Serious: No
  Sender: FDA-Public Use
  Company Number: None

PATIENT
  Age: 39 Year
  Sex: Female

DRUGS (1)
  1. SULFASALAZINE [Suspect]
     Dosage: 1000MG  BID  PO
     Route: 048
     Dates: start: 20130107, end: 20130414

REACTIONS (4)
  - Gastrointestinal tract irritation [None]
  - Product taste abnormal [None]
  - Product substitution issue [None]
  - Product quality issue [None]
